FAERS Safety Report 21837572 (Version 1)
Quarter: 2023Q1

REPORT INFORMATION
  Report Type: Spontaneous
  Country: US (occurrence: None)
  Receive Date: 20230106
  Receipt Date: 20230106
  Transmission Date: 20230418
  Serious: No
  Sender: FDA-Public Use
  Company Number: None

PATIENT
  Age: 57 Year
  Sex: Female
  Weight: 56.25 kg

DRUGS (26)
  1. ACETAMINOPHEN\OXYCODONE HYDROCHLORIDE [Suspect]
     Active Substance: ACETAMINOPHEN\OXYCODONE HYDROCHLORIDE
     Indication: Intervertebral disc degeneration
     Dosage: OTHER QUANTITY : 1.5 TABLET(S);?FREQUENCY : EVERY 4 HOURS;?
     Route: 048
     Dates: start: 20230106
  2. ACETAMINOPHEN\OXYCODONE HYDROCHLORIDE [Suspect]
     Active Substance: ACETAMINOPHEN\OXYCODONE HYDROCHLORIDE
     Indication: Bursitis
  3. ACETAMINOPHEN\OXYCODONE HYDROCHLORIDE [Suspect]
     Active Substance: ACETAMINOPHEN\OXYCODONE HYDROCHLORIDE
     Indication: Osteoarthritis
  4. ACETAMINOPHEN\OXYCODONE HYDROCHLORIDE [Suspect]
     Active Substance: ACETAMINOPHEN\OXYCODONE HYDROCHLORIDE
     Indication: Fibromyalgia
  5. DEVICE [Concomitant]
     Active Substance: DEVICE
  6. IPTATEOOIUM BROMIDE NEBULIZER [Concomitant]
  7. ALBUTEROL [Concomitant]
  8. LEVALBUTERAL [Concomitant]
  9. MONTELAUKAST [Concomitant]
  10. ASPIRIN [Concomitant]
     Active Substance: ASPIRIN
  11. CLONIDINE [Concomitant]
     Active Substance: CLONIDINE
  12. HYDROXYZINE [Concomitant]
     Active Substance: HYDROXYZINE HYDROCHLORIDE
  13. METHOCARBAMOL [Concomitant]
     Active Substance: METHOCARBAMOL
  14. PREDNISONE [Concomitant]
     Active Substance: PREDNISONE
  15. PANTOPRAZOLE [Concomitant]
     Active Substance: PANTOPRAZOLE
  16. ATORVASTATIN [Concomitant]
     Active Substance: ATORVASTATIN
  17. AZITHROMYCIN [Concomitant]
     Active Substance: AZITHROMYCIN
  18. STOOL SOFTENER (DOCUSATE) [Concomitant]
     Active Substance: DOCUSATE
  19. FEROSIMIDE [Concomitant]
  20. MORPHINE [Concomitant]
     Active Substance: MORPHINE
  21. OXYCODONE [Concomitant]
     Active Substance: OXYCODONE
  22. ZOLPIDEM [Concomitant]
     Active Substance: ZOLPIDEM TARTRATE
  23. MULTI GUMMY VITAMIN [Concomitant]
  24. CALCIUM [Concomitant]
     Active Substance: CALCIUM
  25. MAGNESIUM [Concomitant]
     Active Substance: MAGNESIUM
  26. POTASSIUM [Concomitant]
     Active Substance: POTASSIUM

REACTIONS (10)
  - Abdominal pain upper [None]
  - Flatulence [None]
  - Nausea [None]
  - Therapeutic product effect incomplete [None]
  - Crying [None]
  - Loss of personal independence in daily activities [None]
  - Eructation [None]
  - Product substitution issue [None]
  - Product dispensing error [None]
  - Insurance issue [None]

NARRATIVE: CASE EVENT DATE: 20230106
